FAERS Safety Report 9331020 (Version 1)
Quarter: 2013Q2

REPORT INFORMATION
  Report Type: Spontaneous
  Country: US (occurrence: US)
  Receive Date: 20130605
  Receipt Date: 20130605
  Transmission Date: 20140414
  Serious: Yes (Hospitalization)
  Sender: FDA-Public Use
  Company Number: US-ELI_LILLY_AND_COMPANY-US201305008815

PATIENT
  Sex: Female

DRUGS (15)
  1. FORTEO [Suspect]
     Indication: OSTEOPOROSIS
     Dosage: UNK, QD
     Dates: start: 20100101, end: 20120101
  2. CALCIUM [Concomitant]
  3. VITAMIN D [Concomitant]
  4. TEGRETOL [Concomitant]
     Dosage: 200 MG, BID
  5. GABAPENTIN [Concomitant]
     Dosage: 1200 U, QID
  6. NORTRIPTYLINE [Concomitant]
     Dosage: 50 MG, QD
  7. LISINOPRIL [Concomitant]
     Dosage: 40 MG, QD
  8. NORVASC [Concomitant]
     Dosage: 5 MG, QD
  9. PRILOSEC [Concomitant]
     Dosage: 20 MG, UNK
  10. VITAMIN C [Concomitant]
     Dosage: UNK
  11. BABY ASPIRIN [Concomitant]
     Dosage: UNK, QD
  12. ECHINACEA                          /01323501/ [Concomitant]
  13. ZINC [Concomitant]
     Dosage: UNK
  14. MAGNESIUM [Concomitant]
  15. ALLERTEC [Concomitant]
     Indication: HYPERSENSITIVITY

REACTIONS (2)
  - Hip fracture [Unknown]
  - Nasopharyngitis [Unknown]
